FAERS Safety Report 22054104 (Version 1)
Quarter: 2023Q1

REPORT INFORMATION
  Report Type: Spontaneous
  Country: US (occurrence: US)
  Receive Date: 20230302
  Receipt Date: 20230302
  Transmission Date: 20230418
  Serious: No
  Sender: FDA-Public Use
  Company Number: US-NOVOPROD-944799

PATIENT
  Age: 50 Year
  Sex: Female

DRUGS (1)
  1. SAXENDA [Suspect]
     Active Substance: LIRAGLUTIDE
     Indication: Weight decreased
     Dosage: 0.6 MG UNK
     Route: 058
     Dates: start: 20220415

REACTIONS (6)
  - Panic attack [Recovered/Resolved]
  - Nausea [Recovered/Resolved]
  - Product prescribing error [Not Recovered/Not Resolved]
  - Off label use [Recovered/Resolved]
  - Product communication issue [Unknown]
  - Extra dose administered [Unknown]

NARRATIVE: CASE EVENT DATE: 20220415
